FAERS Safety Report 14160506 (Version 2)
Quarter: 2017Q4

REPORT INFORMATION
  Report Type: Report from Study
  Country: IQ (occurrence: IQ)
  Receive Date: 20171106
  Receipt Date: 20171108
  Transmission Date: 20180321
  Serious: Yes (Other)
  Sender: FDA-Public Use
  Company Number: PHHY2017IQ160250

PATIENT
  Sex: Female

DRUGS (1)
  1. GLIVEC [Suspect]
     Active Substance: IMATINIB MESYLATE
     Indication: CHRONIC MYELOID LEUKAEMIA
     Dosage: 400 MG, QD
     Route: 048
     Dates: start: 201708

REACTIONS (5)
  - Renal pain [Unknown]
  - Flank pain [Recovering/Resolving]
  - Blood urea increased [Recovered/Resolved]
  - Nephrolithiasis [Unknown]
  - Kidney infection [Unknown]
